FAERS Safety Report 6888931-4 (Version None)
Quarter: 2010Q3

REPORT INFORMATION
  Report Type: 
  Country: None (occurrence: None)
  Receive Date: 20100730
  Receipt Date: 20100728
  Transmission Date: 20110219
  Serious: Yes (Other)
  Sender: FDA-Public Use
  Company Number: US-MERCK-0908USA02522

PATIENT
  Age: 68 Year
  Sex: Female
  Weight: 63 kg

DRUGS (4)
  1. FOSAMAX [Suspect]
     Indication: OSTEOPOROSIS
     Route: 048
     Dates: start: 20000101, end: 20070101
  2. FOSAMAX [Suspect]
     Route: 048
     Dates: start: 19950101, end: 20070101
  3. FOSAMAX [Suspect]
     Route: 048
     Dates: start: 20040101, end: 20070101
  4. INSULIN [Concomitant]
     Indication: DIABETES MELLITUS
     Route: 065
     Dates: start: 19730101

REACTIONS (27)
  - ANAEMIA [None]
  - BONE DISORDER [None]
  - CATARACT [None]
  - COLONIC POLYP [None]
  - EXOSTOSIS [None]
  - FISTULA [None]
  - HAEMATURIA [None]
  - HYPERCALCIURIA [None]
  - HYPERKERATOSIS [None]
  - MOUTH ULCERATION [None]
  - MYALGIA [None]
  - NEOPLASM MALIGNANT [None]
  - ORAL INFECTION [None]
  - ORAL TORUS [None]
  - OSTEOMYELITIS [None]
  - OSTEONECROSIS OF JAW [None]
  - OSTEOPOROSIS [None]
  - PULPITIS DENTAL [None]
  - ROTATOR CUFF SYNDROME [None]
  - SCAB [None]
  - SKIN ULCER [None]
  - SPINAL DISORDER [None]
  - STOMATITIS [None]
  - THROMBOCYTOSIS [None]
  - TOOTH ABSCESS [None]
  - TOOTH DISORDER [None]
  - TRISMUS [None]
